FAERS Safety Report 6953238-3 (Version None)
Quarter: 2010Q3

REPORT INFORMATION
  Report Type: 
  Country: None (occurrence: None)
  Receive Date: 20100829
  Receipt Date: 20100607
  Transmission Date: 20110219
  Serious: No
  Sender: FDA-Public Use
  Company Number: US-ABBOTT-10P-163-0649568-00

PATIENT
  Sex: Male
  Weight: 76.272 kg

DRUGS (12)
  1. NIASPAN [Suspect]
     Indication: CARDIAC DISORDER
     Dosage: AT BEDTIME
     Route: 048
     Dates: start: 20000101
  2. CRESTOR [Suspect]
     Indication: CARDIAC DISORDER
     Route: 048
     Dates: start: 20080101
  3. LIPITOR [Suspect]
     Indication: CARDIAC DISORDER
     Dates: start: 19990101
  4. TOPROL-XL [Concomitant]
     Indication: HYPERTENSION
     Route: 048
  5. ASPIRIN [Concomitant]
     Indication: ANTICOAGULANT THERAPY
     Route: 048
  6. GLAUCOMA MEDICATIONS [Concomitant]
     Indication: GLAUCOMA
  7. PROTONIX [Concomitant]
     Indication: GASTROOESOPHAGEAL REFLUX DISEASE
     Route: 048
  8. GLIPIZIDE [Concomitant]
     Indication: DIABETES MELLITUS
     Route: 048
  9. TRIMETHOPRIM [Concomitant]
     Indication: PRODUCT USED FOR UNKNOWN INDICATION
     Route: 048
  10. TRAMADOL HCL [Concomitant]
     Indication: ARTHRITIS
     Route: 048
  11. AVODART [Concomitant]
     Indication: BLOOD URINE PRESENT
     Route: 048
  12. TERAZOSIN HCL [Concomitant]
     Indication: BLOOD URINE PRESENT
     Route: 048

REACTIONS (2)
  - FLUSHING [None]
  - MYALGIA [None]
